FAERS Safety Report 25736639 (Version 2)
Quarter: 2025Q3

REPORT INFORMATION
  Report Type: Spontaneous
  Country: EU (occurrence: EU)
  Receive Date: 20250828
  Receipt Date: 20250908
  Transmission Date: 20251021
  Serious: Yes (Hospitalization, Other)
  Sender: MYLAN
  Company Number: EU-PFIZER INC-PV202500097541

PATIENT
  Age: 63 Year
  Sex: Female
  Weight: 57 kg

DRUGS (24)
  1. OXALIPLATIN [Suspect]
     Active Substance: OXALIPLATIN
     Indication: Colorectal adenocarcinoma
     Dates: start: 202503
  2. OXALIPLATIN [Suspect]
     Active Substance: OXALIPLATIN
     Route: 065
     Dates: start: 202503
  3. OXALIPLATIN [Suspect]
     Active Substance: OXALIPLATIN
     Route: 065
     Dates: start: 202503
  4. OXALIPLATIN [Suspect]
     Active Substance: OXALIPLATIN
     Dates: start: 202503
  5. IRINOTECAN [Suspect]
     Active Substance: IRINOTECAN
     Indication: Colorectal adenocarcinoma
  6. IRINOTECAN [Suspect]
     Active Substance: IRINOTECAN
     Route: 065
  7. IRINOTECAN [Suspect]
     Active Substance: IRINOTECAN
     Route: 065
  8. IRINOTECAN [Suspect]
     Active Substance: IRINOTECAN
  9. FLUOROURACIL [Suspect]
     Active Substance: FLUOROURACIL
     Indication: Colorectal adenocarcinoma
  10. FLUOROURACIL [Suspect]
     Active Substance: FLUOROURACIL
  11. FLUOROURACIL [Suspect]
     Active Substance: FLUOROURACIL
     Route: 065
  12. FLUOROURACIL [Suspect]
     Active Substance: FLUOROURACIL
     Route: 065
  13. FLUOROURACIL [Suspect]
     Active Substance: FLUOROURACIL
     Dates: start: 202503
  14. FLUOROURACIL [Suspect]
     Active Substance: FLUOROURACIL
     Dates: start: 202503
  15. FLUOROURACIL [Suspect]
     Active Substance: FLUOROURACIL
     Route: 065
     Dates: start: 202503
  16. FLUOROURACIL [Suspect]
     Active Substance: FLUOROURACIL
     Route: 065
     Dates: start: 202503
  17. LEUCOVORIN [Suspect]
     Active Substance: LEUCOVORIN\LEUCOVORIN CALCIUM
     Indication: Colorectal adenocarcinoma
  18. LEUCOVORIN [Suspect]
     Active Substance: LEUCOVORIN\LEUCOVORIN CALCIUM
  19. LEUCOVORIN [Suspect]
     Active Substance: LEUCOVORIN\LEUCOVORIN CALCIUM
     Route: 065
  20. LEUCOVORIN [Suspect]
     Active Substance: LEUCOVORIN\LEUCOVORIN CALCIUM
     Route: 065
  21. LEUCOVORIN [Suspect]
     Active Substance: LEUCOVORIN\LEUCOVORIN CALCIUM
     Dates: start: 202503
  22. LEUCOVORIN [Suspect]
     Active Substance: LEUCOVORIN\LEUCOVORIN CALCIUM
     Dates: start: 202503
  23. LEUCOVORIN [Suspect]
     Active Substance: LEUCOVORIN\LEUCOVORIN CALCIUM
     Route: 065
     Dates: start: 202503
  24. LEUCOVORIN [Suspect]
     Active Substance: LEUCOVORIN\LEUCOVORIN CALCIUM
     Route: 065
     Dates: start: 202503

REACTIONS (1)
  - Metastases to liver [Unknown]

NARRATIVE: CASE EVENT DATE: 20250701
